FAERS Safety Report 9330660 (Version 1)
Quarter: 2013Q2

REPORT INFORMATION
  Report Type: Spontaneous
  Country: US (occurrence: US)
  Receive Date: 20130605
  Receipt Date: 20130605
  Transmission Date: 20140414
  Serious: Yes (Hospitalization, Other)
  Sender: FDA-Public Use
  Company Number: US-TEVA-409391USA

PATIENT
  Sex: Female

DRUGS (1)
  1. ONDANSETRON [Suspect]
     Indication: NAUSEA
     Route: 048
     Dates: start: 20130506, end: 20130507

REACTIONS (13)
  - Anxiety [Recovering/Resolving]
  - Aphagia [Recovering/Resolving]
  - Depression [Recovering/Resolving]
  - Insomnia [Recovering/Resolving]
  - Vomiting [Recovering/Resolving]
  - Malaise [Recovering/Resolving]
  - Feeling abnormal [Recovering/Resolving]
  - Negative thoughts [Recovering/Resolving]
  - Violence-related symptom [Recovering/Resolving]
  - Crying [Recovering/Resolving]
  - Affect lability [Recovering/Resolving]
  - Drug hypersensitivity [Recovering/Resolving]
  - Pregnancy [Unknown]
